FAERS Safety Report 6923142-5 (Version None)
Quarter: 2010Q3

REPORT INFORMATION
  Report Type: 
  Country: None (occurrence: None)
  Receive Date: 20100813
  Receipt Date: 20100804
  Transmission Date: 20110219
  Serious: Yes (Life-Threatening, Other)
  Sender: FDA-Public Use
  Company Number: JP-ROCHE-660489

PATIENT
  Sex: Male
  Weight: 62 kg

DRUGS (7)
  1. AVASTIN [Suspect]
     Indication: COLON CANCER METASTATIC
     Route: 041
     Dates: start: 20080812, end: 20090908
  2. ELPLAT [Concomitant]
     Dosage: NOTE: DOSAGE IS UNCERTAIN
     Route: 041
     Dates: start: 20080812, end: 20090908
  3. FLUOROURACIL [Concomitant]
     Route: 040
     Dates: start: 20080812, end: 20090908
  4. FLUOROURACIL [Concomitant]
     Route: 041
     Dates: start: 20080812, end: 20090901
  5. LEUCOVORIN CALCIUM [Concomitant]
     Dosage: DRUG NAME: LEVOFOLINATE CALCIUM
     Route: 041
     Dates: start: 20080812, end: 20090908
  6. MAGMITT [Concomitant]
     Route: 048
     Dates: start: 20080901
  7. FENTANYL [Concomitant]
     Dosage: DOSE FORM: TAPE, NOTE: DOSAGE IS UNCERTAIN.
     Route: 061

REACTIONS (6)
  - ABDOMINAL ABSCESS [None]
  - GASTROINTESTINAL PERFORATION [None]
  - LARGE INTESTINE PERFORATION [None]
  - PERITONITIS [None]
  - POSTOPERATIVE ABSCESS [None]
  - POSTOPERATIVE WOUND INFECTION [None]
